FAERS Safety Report 23683923 (Version 1)
Quarter: 2024Q1

REPORT INFORMATION
  Report Type: Spontaneous
  Country: BR (occurrence: BR)
  Receive Date: 20240328
  Receipt Date: 20240328
  Transmission Date: 20240410
  Serious: Yes (Other)
  Sender: FDA-Public Use
  Company Number: BR-PHATHOM PHARMACEUTICALS INC.-2024PHT00161

PATIENT
  Sex: Female
  Weight: 62 kg

DRUGS (4)
  1. VONOPRAZAN FUMARATE [Suspect]
     Active Substance: VONOPRAZAN FUMARATE
     Indication: Gastritis
     Dosage: 20 MG, 1X/DAY
     Route: 065
     Dates: start: 202310
  2. VONOPRAZAN FUMARATE [Suspect]
     Active Substance: VONOPRAZAN FUMARATE
     Indication: Gastrooesophageal reflux disease
  3. PURAN [Concomitant]
     Active Substance: LEVOTHYROXINE SODIUM
     Dosage: UNK
  4. LOSARTAN [Concomitant]
     Active Substance: LOSARTAN

REACTIONS (6)
  - Rectocele [Unknown]
  - Alopecia [Unknown]
  - Anxiety [Unknown]
  - Fear [Unknown]
  - Off label use [Unknown]
  - Gastritis [Unknown]
